FAERS Safety Report 8152552-6 (Version None)
Quarter: 2012Q1

REPORT INFORMATION
  Report Type: 
  Country: None (occurrence: None)
  Receive Date: 20120221
  Receipt Date: 20120215
  Transmission Date: 20120608
  Serious: Yes (Death, Hospitalization)
  Sender: FDA-Public Use
  Company Number: US-JNJFOC-20120208700

PATIENT
  Sex: Female
  Weight: 90.72 kg

DRUGS (12)
  1. NORTRIPTYLINE HCL [Concomitant]
     Indication: DEPRESSION
     Route: 048
     Dates: start: 19940101
  2. METOPROLOL TARTRATE [Concomitant]
     Indication: BLOOD PRESSURE
     Route: 048
  3. FENTANYL-100 [Suspect]
     Indication: ARTHRITIS
     Route: 062
     Dates: start: 19980101, end: 20090101
  4. FENTANYL-100 [Suspect]
     Route: 062
     Dates: start: 20090101, end: 20120101
  5. UNKNOWN MEDICATION [Concomitant]
     Indication: THYROID THERAPY
     Route: 048
  6. DONEPEZIL HCL [Concomitant]
     Route: 048
  7. RANITIDINE [Concomitant]
     Indication: PEPTIC ULCER
     Route: 048
  8. FENTANYL-100 [Suspect]
     Route: 062
     Dates: start: 20090101, end: 20120101
  9. FENTANYL-100 [Suspect]
     Route: 062
     Dates: start: 20120101
  10. RANITIDINE [Concomitant]
     Indication: GASTROOESOPHAGEAL REFLUX DISEASE
     Route: 048
  11. FENTANYL-100 [Suspect]
     Indication: BACK PAIN
     Route: 062
     Dates: start: 19980101, end: 20090101
  12. FENTANYL-100 [Suspect]
     Route: 062
     Dates: start: 20120101

REACTIONS (8)
  - TREATMENT NONCOMPLIANCE [None]
  - INSOMNIA [None]
  - RESTLESS LEGS SYNDROME [None]
  - DEATH [None]
  - MEMORY IMPAIRMENT [None]
  - PULMONARY THROMBOSIS [None]
  - DRUG DOSE OMISSION [None]
  - GASTROOESOPHAGEAL REFLUX DISEASE [None]
